FAERS Safety Report 22263151 (Version 2)
Quarter: 2023Q2

REPORT INFORMATION
  Report Type: Other
  Country: MX (occurrence: None)
  Receive Date: 20230428
  Receipt Date: 20230503
  Transmission Date: 20230721
  Serious: No
  Sender: FDA-Public Use
  Company Number: MX-ROCHE-3292108

PATIENT
  Sex: Female

DRUGS (4)
  1. ENSPRYNG [Suspect]
     Active Substance: SATRALIZUMAB-MWGE
     Indication: Neuromyelitis optica spectrum disorder
     Route: 058
     Dates: start: 20221212
  2. LYRICA [Concomitant]
     Active Substance: PREGABALIN
     Dosage: DOSE AND FREQUENCY WERE NOT REPORTED
  3. LIPITOR [Concomitant]
     Active Substance: ATORVASTATIN CALCIUM
  4. CALCIUM [Concomitant]
     Active Substance: CALCIUM

REACTIONS (49)
  - Nervousness [Unknown]
  - Fear [Unknown]
  - Discomfort [Unknown]
  - Gait disturbance [Unknown]
  - Overweight [Unknown]
  - COVID-19 [Unknown]
  - Disturbance in social behaviour [Unknown]
  - Parinaud syndrome [Unknown]
  - Tongue disorder [Unknown]
  - Headache [Unknown]
  - Eye pain [Unknown]
  - Hypoaesthesia [Unknown]
  - Stress [Unknown]
  - Frustration tolerance decreased [Unknown]
  - Adverse reaction [Unknown]
  - Emotional distress [Unknown]
  - Fatigue [Unknown]
  - Irritability [Unknown]
  - Weight increased [Unknown]
  - Attention deficit hyperactivity disorder [Unknown]
  - Self esteem decreased [Unknown]
  - Paraesthesia [Unknown]
  - Anxiety [Unknown]
  - Restlessness [Unknown]
  - Joint swelling [Unknown]
  - Therapeutic response shortened [Unknown]
  - Drug ineffective [Unknown]
  - Influenza [Not Recovered/Not Resolved]
  - Pyrexia [Unknown]
  - Liver function test abnormal [Unknown]
  - Insomnia [Unknown]
  - Arthralgia [Unknown]
  - Blood cholesterol increased [Unknown]
  - Dyspepsia [Unknown]
  - Depression [Unknown]
  - Somnolence [Unknown]
  - Paraesthesia [Unknown]
  - Fatigue [Unknown]
  - Joint swelling [Unknown]
  - Weight increased [Unknown]
  - Fatigue [Unknown]
  - Pain [Unknown]
  - Asthenia [Unknown]
  - Walking distance test abnormal [Unknown]
  - Investigation abnormal [Unknown]
  - Liver disorder [Unknown]
  - Back pain [Unknown]
  - Hypokinesia [Unknown]
  - Hypoaesthesia [Unknown]

NARRATIVE: CASE EVENT DATE: 20230101
